FAERS Safety Report 21129205 (Version 1)
Quarter: 2022Q3

REPORT INFORMATION
  Report Type: Spontaneous
  Country: US (occurrence: US)
  Receive Date: 20220725
  Receipt Date: 20220725
  Transmission Date: 20221027
  Serious: Yes (Death, Hospitalization, Other)
  Sender: FDA-Public Use
  Company Number: US-009507513-2207USA006503

PATIENT
  Sex: Male

DRUGS (2)
  1. KEYTRUDA [Suspect]
     Active Substance: PEMBROLIZUMAB
     Indication: Thyroid cancer metastatic
     Dosage: FREQUENCY IS EVERY THREE WEEKS
     Route: 042
     Dates: start: 20220616
  2. LENVIMA [Concomitant]
     Active Substance: LENVATINIB
     Dosage: 24 MILLIGRAM DAILY

REACTIONS (5)
  - Malignant neoplasm progression [Fatal]
  - Fall [Unknown]
  - Respiration abnormal [Unknown]
  - Abdominal pain upper [Unknown]
  - Product use in unapproved indication [Unknown]

NARRATIVE: CASE EVENT DATE: 20220101
